FAERS Safety Report 6188639-7 (Version None)
Quarter: 2009Q2

REPORT INFORMATION
  Report Type: 
  Country: None (occurrence: None)
  Receive Date: 20090513
  Receipt Date: 20090112
  Transmission Date: 20091009
  Serious: No
  Sender: FDA-Public Use
  Company Number: US-B.I. PHARMACEUTICALS,INC./RIDGEFIELD-2009-BP-00842BP

PATIENT
  Sex: Female
  Weight: 96 kg

DRUGS (7)
  1. MIRAPEX [Suspect]
     Indication: RESTLESS LEGS SYNDROME
  2. LUNESTA [Suspect]
     Indication: INSOMNIA
     Dosage: 3MG
     Route: 048
     Dates: start: 20081217, end: 20081218
  3. NEURONTIN [Concomitant]
     Dates: start: 20080801
  4. REQUIP [Concomitant]
  5. METHADONE HCL [Concomitant]
  6. OXYCODONE HCL [Concomitant]
  7. AMBIEN [Concomitant]

REACTIONS (1)
  - DRUG INEFFECTIVE [None]
